FAERS Safety Report 22279187 (Version 2)
Quarter: 2023Q2

REPORT INFORMATION
  Report Type: Report from Study
  Country: AU (occurrence: AU)
  Receive Date: 20230503
  Receipt Date: 20230510
  Transmission Date: 20230721
  Serious: Yes (Hospitalization)
  Sender: FDA-Public Use
  Company Number: AU-002147023-NVSC2023AU079099

PATIENT
  Age: 38 Year
  Sex: Male
  Weight: 78.5 kg

DRUGS (9)
  1. RINETERKIB [Suspect]
     Active Substance: RINETERKIB
     Indication: Colorectal cancer
     Dosage: 200 MG, QD
     Route: 048
     Dates: start: 20230405, end: 20230405
  2. TISLELIZUMAB [Suspect]
     Active Substance: TISLELIZUMAB
     Indication: Colorectal cancer
     Dosage: 300 MG, Q4W
     Route: 042
     Dates: start: 20230405, end: 20230405
  3. DABRAFENIB [Suspect]
     Active Substance: DABRAFENIB
     Indication: Colorectal cancer
     Dosage: 150 MG, QD
     Route: 048
     Dates: start: 20230405, end: 20230405
  4. MORPHINE [Concomitant]
     Active Substance: MORPHINE
     Indication: Cancer pain
     Dosage: UNK
     Route: 065
     Dates: start: 20230405, end: 20230406
  5. TELMISARTAN [Concomitant]
     Active Substance: TELMISARTAN
     Indication: Hypertension
     Dosage: UNK
     Route: 065
     Dates: start: 2021
  6. LORATADINE [Concomitant]
     Active Substance: LORATADINE
     Indication: Rash
     Dosage: UNK
     Route: 065
     Dates: start: 20230405, end: 20230405
  7. OXYCODONE HYDROCHLORIDE [Concomitant]
     Active Substance: OXYCODONE HYDROCHLORIDE
     Indication: Cancer pain
     Dosage: UNK
     Route: 065
     Dates: start: 20220905
  8. OXYCONTIN [Concomitant]
     Active Substance: OXYCODONE HYDROCHLORIDE
     Indication: Cancer pain
     Dosage: UNK
     Route: 065
     Dates: start: 20220905
  9. PANADOL [Concomitant]
     Active Substance: ACETAMINOPHEN
     Indication: Cancer pain
     Dosage: UNK
     Route: 065
     Dates: start: 20220905

REACTIONS (3)
  - Pyrexia [Recovered/Resolved]
  - Hypotension [Not Recovered/Not Resolved]
  - Bronchospasm [Recovered/Resolved]

NARRATIVE: CASE EVENT DATE: 20230405
